FAERS Safety Report 9568105 (Version 1)
Quarter: 2013Q3

REPORT INFORMATION
  Report Type: Spontaneous
  Country: US (occurrence: US)
  Receive Date: 20130930
  Receipt Date: 20130930
  Transmission Date: 20140515
  Serious: No
  Sender: FDA-Public Use
  Company Number: US-AMGEN-USASP2013055496

PATIENT
  Age: 46 Year
  Sex: Male
  Weight: 81.18 kg

DRUGS (5)
  1. ENBREL [Suspect]
     Indication: PRODUCT USED FOR UNKNOWN INDICATION
     Dosage: 50 MG, EVERY 5 DAYS
     Route: 065
  2. HUMIRA [Concomitant]
     Indication: PSORIASIS
     Dosage: UNK
  3. LIPITOR [Concomitant]
     Dosage: 10 MG, UNK
  4. ZIAC                               /00821801/ [Concomitant]
     Dosage: UNK 2.5/6.25
  5. VITAMIN D3 [Concomitant]
     Dosage: 10000 UNIT, UNK

REACTIONS (1)
  - Therapeutic response decreased [Unknown]
